FAERS Safety Report 10151974 (Version 2)
Quarter: 2014Q2

REPORT INFORMATION
  Report Type: Spontaneous
  Country: DE (occurrence: DE)
  Receive Date: 20140505
  Receipt Date: 20140527
  Transmission Date: 20141212
  Serious: Yes (Hospitalization, Other)
  Sender: FDA-Public Use
  Company Number: DE-JNJFOC-20140419411

PATIENT
  Age: 10 Year
  Sex: Male
  Weight: 40 kg

DRUGS (2)
  1. TRAMAL TROPFEN [Suspect]
     Indication: PHANTOM PAIN
     Route: 048
  2. TRAMAL TROPFEN [Suspect]
     Indication: PHANTOM PAIN
     Route: 048

REACTIONS (6)
  - Serotonin syndrome [Recovered/Resolved]
  - Accidental overdose [Unknown]
  - Dizziness [Recovered/Resolved]
  - Nausea [Recovered/Resolved]
  - Hyperhidrosis [Recovered/Resolved]
  - Incorrect dose administered [Unknown]
